FAERS Safety Report 10101773 (Version 3)
Quarter: 2014Q2

REPORT INFORMATION
  Report Type: Report from Study
  Country: AU (occurrence: AU)
  Receive Date: 20140424
  Receipt Date: 20140519
  Transmission Date: 20141212
  Serious: Yes (Death, Other)
  Sender: FDA-Public Use
  Company Number: AU-ROCHE-1380700

PATIENT
  Age: 68 Year
  Sex: Male

DRUGS (1)
  1. HERCEPTIN [Suspect]
     Indication: GASTRIC CANCER
     Route: 042
     Dates: start: 20130617, end: 20140321

REACTIONS (3)
  - Disease progression [Fatal]
  - Pneumonia aspiration [Unknown]
  - Sepsis [Unknown]
